FAERS Safety Report 17225727 (Version 2)
Quarter: 2020Q1

REPORT INFORMATION
  Report Type: Report from Study
  Country: US (occurrence: US)
  Receive Date: 20200102
  Receipt Date: 20200311
  Transmission Date: 20200409
  Serious: Yes (Other)
  Sender: FDA-Public Use
  Company Number: NVSC2019US083348

PATIENT
  Age: 41 Year
  Sex: Female

DRUGS (1)
  1. GLATOPA [Suspect]
     Active Substance: GLATIRAMER ACETATE
     Indication: MULTIPLE SCLEROSIS
     Dosage: 40 MG, TIW
     Route: 065
     Dates: start: 20190501, end: 20191227

REACTIONS (7)
  - Syncope [Unknown]
  - Chest pain [Recovered/Resolved]
  - Heart rate increased [Unknown]
  - Dyspnoea [Unknown]
  - Anxiety [Unknown]
  - Chest discomfort [Unknown]
  - Flushing [Unknown]

NARRATIVE: CASE EVENT DATE: 20191223
